FAERS Safety Report 5317099-0 (Version None)
Quarter: 2007Q2

REPORT INFORMATION
  Report Type: 
  Country: None (occurrence: None)
  Receive Date: 20070504
  Receipt Date: 20070425
  Transmission Date: 20071010
  Serious: Yes (Other)
  Sender: FDA-Public Use
  Company Number: FI-ROCHE-494798

PATIENT

DRUGS (1)
  1. BONIVA [Suspect]
     Indication: OSTEOPOROSIS
     Dosage: STRENGTH REPORTED AS 3MG/3ML; FORMULATION REPORTED AS INFUSION.
     Route: 042

REACTIONS (1)
  - ANAPHYLACTOID REACTION [None]
